FAERS Safety Report 15546266 (Version 4)
Quarter: 2019Q4

REPORT INFORMATION
  Report Type: Report from Study
  Country: RU (occurrence: RU)
  Receive Date: 20181024
  Receipt Date: 20191031
  Transmission Date: 20200122
  Serious: Yes (Hospitalization)
  Sender: FDA-Public Use
  Company Number: PHHO2018RU011341

PATIENT
  Age: 57 Year
  Sex: Female
  Weight: 92 kg

DRUGS (4)
  1. DROTAVERIN [Concomitant]
     Active Substance: DROTAVERINE
     Indication: CHOLECYSTITIS ACUTE
     Dosage: 80 MG, PRN
     Route: 048
     Dates: start: 20171006, end: 20180713
  2. RIBOCICLIB. [Suspect]
     Active Substance: RIBOCICLIB
     Indication: BREAST CANCER
     Dosage: 600 MG, QD
     Route: 048
     Dates: start: 20170824, end: 20181010
  3. LETROZOLE. [Suspect]
     Active Substance: LETROZOLE
     Indication: BREAST CANCER
     Dosage: 2.5 MG, QD
     Route: 048
     Dates: start: 20170824
  4. DICLOFENAC [Concomitant]
     Active Substance: DICLOFENAC
     Indication: INTERVERTEBRAL DISC PROTRUSION
     Dosage: 100 MG, Q12H
     Route: 048
     Dates: start: 20180901, end: 20181015

REACTIONS (3)
  - Gallbladder empyema [Recovered/Resolved]
  - Liver abscess [Recovering/Resolving]
  - Cholecystitis acute [Recovered/Resolved]

NARRATIVE: CASE EVENT DATE: 20181016
